FAERS Safety Report 6155935-9 (Version None)
Quarter: 2009Q2

REPORT INFORMATION
  Report Type: 
  Country: None (occurrence: None)
  Receive Date: 20090415
  Receipt Date: 20090407
  Transmission Date: 20091009
  Serious: Yes (Life-Threatening, Hospitalization)
  Sender: FDA-Public Use
  Company Number: BE-ROCHE-624761

PATIENT
  Sex: Female
  Weight: 61 kg

DRUGS (3)
  1. CAPECITABINE [Suspect]
     Indication: BREAST CANCER
     Dosage: SCHEDULE REPORTED: 825 MG/M2, 2 X/DAY, FROM DAYS 1 TO 14,DATE OF LAST DOSE PRIOR TO SAE: 26 MAR.09
     Route: 048
     Dates: start: 20090302
  2. TAXOTERE [Suspect]
     Indication: BREAST CANCER
     Dosage: SCHEDULE REPORTED: 75 MG/M2 ON DAY 1,ACTUAL DOSE GIVEN:120 MG LAST DOSE PRIOR TO SAE:26 MAR.09
     Route: 042
     Dates: start: 20090302
  3. ZYRTEC [Concomitant]
     Route: 048
     Dates: start: 20090316

REACTIONS (3)
  - FEBRILE NEUTROPENIA [None]
  - MUCOSAL INFLAMMATION [None]
  - SYNCOPE [None]
